FAERS Safety Report 8880177 (Version 1)
Quarter: 2012Q4

REPORT INFORMATION
  Report Type: 
  Country: FR (occurrence: FR)
  Receive Date: 20121031
  Receipt Date: 20121031
  Transmission Date: 20130627
  Serious: Yes (Other)
  Sender: FDA-Public Use
  Company Number: FR-ASTRAZENECA-2012SE82371

PATIENT
  Age: 687 Month
  Sex: Male

DRUGS (2)
  1. CRESTOR [Suspect]
     Indication: DYSLIPIDAEMIA
     Route: 048
     Dates: start: 201201, end: 201209
  2. METFORMINE [Concomitant]

REACTIONS (1)
  - Diabetes mellitus inadequate control [Not Recovered/Not Resolved]
